FAERS Safety Report 6873229-0 (Version None)
Quarter: 2010Q3

REPORT INFORMATION
  Report Type: 
  Country: None (occurrence: None)
  Receive Date: 20100723
  Receipt Date: 20081208
  Transmission Date: 20110219
  Serious: No
  Sender: FDA-Public Use
  Company Number: US-PFIZER INC-2008156264

PATIENT
  Sex: Female
  Weight: 72.574 kg

DRUGS (6)
  1. CHANTIX [Suspect]
     Indication: SMOKING CESSATION THERAPY
     Dates: start: 20081101
  2. ZANTAC [Concomitant]
     Indication: GASTROOESOPHAGEAL REFLUX DISEASE
     Dosage: 300 MG, 2X/DAY
  3. HYDROCHLOROTHIAZIDE [Concomitant]
     Dosage: 25 MG, 1X/DAY
  4. PREMARIN [Concomitant]
     Dosage: 0.3 MG, 1X/DAY
  5. ATENOLOL [Concomitant]
     Dosage: 25 MG, 2X/DAY
  6. PRAVASTATIN [Concomitant]
     Dosage: 20 MG, 1X/DAY

REACTIONS (1)
  - NAUSEA [None]
